FAERS Safety Report 8640622 (Version 18)
Quarter: 2016Q3

REPORT INFORMATION
  Report Type: Report from Study
  Country: CA (occurrence: CA)
  Receive Date: 20120628
  Receipt Date: 20160802
  Transmission Date: 20161109
  Serious: Yes (Hospitalization, Other)
  Sender: FDA-Public Use
  Company Number: PHHY2012CA054891

PATIENT
  Age: 70 Year
  Sex: Female

DRUGS (3)
  1. SANDOSTATIN LAR DEPOT [Suspect]
     Active Substance: OCTREOTIDE ACETATE
     Indication: NEUROENDOCRINE TUMOUR
     Dosage: 20 MG, QMO
     Route: 030
     Dates: start: 20120523
  2. SANDOSTATIN LAR DEPOT [Suspect]
     Active Substance: OCTREOTIDE ACETATE
     Dosage: 60 MG, QMO (EVERY 4 WEEKS)
     Route: 030
     Dates: end: 20160705
  3. SANDOSTATIN LAR DEPOT [Suspect]
     Active Substance: OCTREOTIDE ACETATE
     Dosage: 30 MG, QMO (EVERY 4 WEEKS)
     Route: 030

REACTIONS (24)
  - Cholelithiasis [Unknown]
  - Bronchitis [Unknown]
  - Abdominal pain [Unknown]
  - Spinal disorder [Unknown]
  - Dyspnoea [Unknown]
  - Respiratory disorder [Unknown]
  - Humerus fracture [Unknown]
  - Lung infection [Unknown]
  - Discomfort [Unknown]
  - 5-hydroxyindolacetic acid increased [Unknown]
  - Haemoglobin decreased [Recovered/Resolved]
  - Fall [Unknown]
  - Neoplasm [Unknown]
  - Eyelid tumour [Unknown]
  - Influenza like illness [Recovering/Resolving]
  - Asthenia [Unknown]
  - Blood pressure systolic increased [Unknown]
  - Eye swelling [Unknown]
  - Pain in extremity [Not Recovered/Not Resolved]
  - Blood pressure decreased [Unknown]
  - Malaise [Unknown]
  - Influenza [Recovering/Resolving]
  - Blood count abnormal [Unknown]
  - Vomiting [Unknown]

NARRATIVE: CASE EVENT DATE: 20130924
